FAERS Safety Report 6844906-2 (Version None)
Quarter: 2010Q3

REPORT INFORMATION
  Report Type: 
  Country: None (occurrence: None)
  Receive Date: 20100715
  Receipt Date: 20100709
  Transmission Date: 20110219
  Serious: Yes (Hospitalization)
  Sender: FDA-Public Use
  Company Number: US-CEPHALON-2010000338

PATIENT
  Sex: Male
  Weight: 79 kg

DRUGS (7)
  1. ACTIQ [Suspect]
     Indication: PAIN
     Route: 002
     Dates: start: 20020101, end: 20060901
  2. ACTIQ [Suspect]
     Route: 002
     Dates: start: 20060901, end: 20080801
  3. ACTIQ [Suspect]
     Route: 002
     Dates: start: 20080801, end: 20100121
  4. ACTIQ [Suspect]
     Route: 002
     Dates: start: 20090101, end: 20100121
  5. FENTANYL-75 [Concomitant]
     Indication: PAIN
     Route: 062
     Dates: start: 19970101
  6. EFFEXOR [Concomitant]
     Indication: PAIN
     Route: 048
     Dates: start: 19980101
  7. DIAZEPAM [Concomitant]
     Indication: MUSCLE SPASMS
     Route: 048
     Dates: start: 19980101

REACTIONS (4)
  - DRUG INEFFECTIVE FOR UNAPPROVED INDICATION [None]
  - DRUG PRESCRIBING ERROR [None]
  - TOOTH EROSION [None]
  - WEIGHT INCREASED [None]
